FAERS Safety Report 11699023 (Version 2)
Quarter: 2016Q3

REPORT INFORMATION
  Report Type: Report from Study
  Country: US (occurrence: US)
  Receive Date: 20151104
  Receipt Date: 20160809
  Transmission Date: 20161109
  Serious: Yes (Disabling, Other)
  Sender: FDA-Public Use
  Company Number: US-ACTELION-A-US2015-126815

PATIENT
  Age: 73 Year
  Sex: Male

DRUGS (5)
  1. COZAAR [Concomitant]
     Active Substance: LOSARTAN POTASSIUM
     Indication: HYPERTENSION
  2. SILDENAFIL. [Concomitant]
     Active Substance: SILDENAFIL
     Dosage: UNK, TID
     Dates: start: 2006
  3. TRACLEER [Suspect]
     Active Substance: BOSENTAN
     Indication: PULMONARY ARTERIAL HYPERTENSION
     Dosage: ^FULL DOSE^, BID
     Route: 048
     Dates: start: 2006
  4. TRACLEER [Suspect]
     Active Substance: BOSENTAN
     Dosage: ^HALF A FULL DOSE^, BID
     Route: 048
     Dates: start: 2006, end: 2006
  5. FUROSEMIDE. [Suspect]
     Active Substance: FUROSEMIDE
     Indication: FLUID RETENTION
     Dosage: 40 MG, BID
     Route: 065

REACTIONS (10)
  - Memory impairment [Not Recovered/Not Resolved]
  - Oedema peripheral [Not Recovered/Not Resolved]
  - Retinopexy [Recovered/Resolved]
  - Cataract [Recovered/Resolved]
  - Fluid retention [Not Recovered/Not Resolved]
  - Retinal detachment [Recovered/Resolved]
  - Cataract operation [Recovered/Resolved]
  - Procedural complication [Not Recovered/Not Resolved]
  - Blindness unilateral [Not Recovered/Not Resolved]
  - Drug dose omission [Recovered/Resolved]

NARRATIVE: CASE EVENT DATE: 201412
